FAERS Safety Report 19355830 (Version 1)
Quarter: 2021Q2

REPORT INFORMATION
  Report Type: Spontaneous
  Country: US (occurrence: US)
  Receive Date: 20210601
  Receipt Date: 20210601
  Transmission Date: 20210717
  Serious: Yes (Other)
  Sender: FDA-Public Use
  Company Number: US-AMGEN-USASP2021081661

PATIENT
  Age: 80 Year
  Sex: Female

DRUGS (4)
  1. OTEZLA [Suspect]
     Active Substance: APREMILAST
     Indication: PSORIASIS
     Dosage: 30 MILLIGRAM, BID
     Route: 048
     Dates: start: 20180213
  2. PRAVASTATIN. [Concomitant]
     Active Substance: PRAVASTATIN
  3. HYDROCORTISONE. [Concomitant]
     Active Substance: HYDROCORTISONE
  4. DIPHENOXYLATE/ATROPINE [Concomitant]
     Active Substance: ATROPINE\DIPHENOXYLATE

REACTIONS (1)
  - Chemotherapy [Not Recovered/Not Resolved]

NARRATIVE: CASE EVENT DATE: 2021
